FAERS Safety Report 5652614-9 (Version None)
Quarter: 2008Q1

REPORT INFORMATION
  Report Type: 
  Country: None (occurrence: None)
  Receive Date: 20080305
  Receipt Date: 20080305
  Transmission Date: 20080703
  Serious: Yes (Hospitalization)
  Sender: FDA-Public Use
  Company Number: None

PATIENT
  Age: 87 Year
  Sex: Male
  Weight: 78 kg

DRUGS (5)
  1. REVLIMID [Suspect]
     Indication: PROSTATE CANCER
     Dosage: 25MG DAILY X 21 DAYS PO
     Route: 048
     Dates: start: 20080201, end: 20080214
  2. KETOCONAZOLE [Suspect]
     Indication: PROSTATE CANCER
     Dosage: 400MG TID PO
     Route: 048
     Dates: start: 20080201, end: 20080227
  3. HYDROCORTISONE [Concomitant]
  4. CARDURA [Concomitant]
  5. ASPIRIN [Concomitant]

REACTIONS (1)
  - DEEP VEIN THROMBOSIS [None]
